FAERS Safety Report 10040148 (Version 2)
Quarter: 2014Q2

REPORT INFORMATION
  Report Type: Report from Study
  Country: US (occurrence: US)
  Receive Date: 20140326
  Receipt Date: 20140421
  Transmission Date: 20141212
  Serious: Yes (Death, Hospitalization)
  Sender: FDA-Public Use
  Company Number: US-CELGENEUS-163-21660-14033081

PATIENT
  Age: 58 Year
  Sex: Male
  Weight: 72.4 kg

DRUGS (6)
  1. ABRAXANE [Suspect]
     Indication: PLASMA CELL MYELOMA
     Route: 041
     Dates: start: 20130424, end: 20130501
  2. NEUPOGEN [Concomitant]
     Indication: PRODUCT USED FOR UNKNOWN INDICATION
     Route: 065
     Dates: start: 201305, end: 201305
  3. EPOGEN [Concomitant]
     Indication: PRODUCT USED FOR UNKNOWN INDICATION
     Route: 065
     Dates: start: 201305, end: 201305
  4. PLATELETS [Concomitant]
     Indication: PRODUCT USED FOR UNKNOWN INDICATION
     Route: 041
     Dates: start: 20130502, end: 201305
  5. PLASMA [Concomitant]
     Indication: PRODUCT USED FOR UNKNOWN INDICATION
     Route: 041
     Dates: start: 20130502, end: 201305
  6. PRBC [Concomitant]
     Indication: PRODUCT USED FOR UNKNOWN INDICATION
     Route: 041
     Dates: start: 20130502, end: 201305

REACTIONS (25)
  - Death [Fatal]
  - Respiratory failure [Unknown]
  - Duodenal ulcer [Unknown]
  - Gastric ulcer [Unknown]
  - Atrial fibrillation [Unknown]
  - Mallory-Weiss syndrome [Unknown]
  - Hypocalcaemia [Unknown]
  - Somnolence [Unknown]
  - Leukopenia [Unknown]
  - Thrombocytopenia [Unknown]
  - Oedema peripheral [Unknown]
  - Candida sepsis [Unknown]
  - Clostridium difficile infection [Unknown]
  - Back pain [Unknown]
  - Lymphopenia [Unknown]
  - Febrile neutropenia [Unknown]
  - Pulmonary embolism [Unknown]
  - Dyspnoea [Unknown]
  - Diarrhoea [Unknown]
  - Anaemia [Unknown]
  - Hypotension [Unknown]
  - Sepsis [Unknown]
  - Pneumonia klebsiella [Unknown]
  - Neutrophil count decreased [Unknown]
  - White blood cell count decreased [Unknown]
